FAERS Safety Report 21412311 (Version 1)
Quarter: 2022Q4

REPORT INFORMATION
  Report Type: Other
  Country: None (occurrence: US)
  Receive Date: 20221005
  Receipt Date: 20221005
  Transmission Date: 20230113
  Serious: Yes (Hospitalization)
  Sender: FDA-Public Use
  Company Number: US-XGen Pharmaceuticals DJB, Inc.-2133491

PATIENT
  Age: 68 Year
  Sex: Male

DRUGS (2)
  1. POLYMYXIN B [Suspect]
     Active Substance: POLYMYXIN B
     Route: 042
  2. MEROPENEM [Concomitant]
     Active Substance: MEROPENEM
     Route: 042

REACTIONS (1)
  - Drug-induced liver injury [Recovered/Resolved]
